FAERS Safety Report 21680118 (Version 4)
Quarter: 2024Q2

REPORT INFORMATION
  Report Type: Spontaneous
  Country: US (occurrence: US)
  Receive Date: 20221205
  Receipt Date: 20240503
  Transmission Date: 20240716
  Serious: Yes (Life-Threatening, Other)
  Sender: FDA-Public Use
  Company Number: US-GBT-018036

PATIENT
  Age: 55 Year
  Sex: Female
  Weight: 52.045 kg

DRUGS (3)
  1. OXBRYTA [Suspect]
     Active Substance: VOXELOTOR
     Indication: Sickle cell disease
     Dosage: 1500 MG, 1X/DAY
     Route: 048
     Dates: start: 20211002
  2. OXBRYTA [Suspect]
     Active Substance: VOXELOTOR
     Indication: Anaemia
     Dosage: 500 MG 3 TABLETS ONCE PER DAY (1500MG)
     Dates: end: 2023
  3. OXBRYTA [Suspect]
     Active Substance: VOXELOTOR
     Indication: Haemoglobin decreased

REACTIONS (28)
  - Terminal state [Unknown]
  - Sickle cell anaemia with crisis [Recovered/Resolved]
  - Sickle cell anaemia with crisis [Recovered/Resolved]
  - Sickle cell anaemia with crisis [Not Recovered/Not Resolved]
  - Sickle cell anaemia with crisis [Not Recovered/Not Resolved]
  - Pain in extremity [Recovered/Resolved]
  - Burning sensation [Unknown]
  - Muscle spasms [Not Recovered/Not Resolved]
  - Muscle spasms [Not Recovered/Not Resolved]
  - Gait inability [Recovered/Resolved]
  - Depression [Not Recovered/Not Resolved]
  - Vertigo [Not Recovered/Not Resolved]
  - Loss of personal independence in daily activities [Recovered/Resolved]
  - Dizziness [Not Recovered/Not Resolved]
  - Sinus disorder [Not Recovered/Not Resolved]
  - Decreased appetite [Not Recovered/Not Resolved]
  - Blood potassium decreased [Unknown]
  - Blood magnesium decreased [Unknown]
  - Memory impairment [Not Recovered/Not Resolved]
  - Paraesthesia [Unknown]
  - Peripheral swelling [Unknown]
  - Muscle tightness [Unknown]
  - Impaired driving ability [Unknown]
  - Feeling abnormal [Unknown]
  - Eating disorder [Unknown]
  - Head discomfort [Unknown]
  - Ear discomfort [Unknown]
  - Peripheral swelling [Unknown]

NARRATIVE: CASE EVENT DATE: 20221101
